FAERS Safety Report 16802142 (Version 2)
Quarter: 2019Q4

REPORT INFORMATION
  Report Type: Spontaneous
  Country: US (occurrence: US)
  Receive Date: 20190912
  Receipt Date: 20191126
  Transmission Date: 20200122
  Serious: Yes (Other)
  Sender: FDA-Public Use
  Company Number: US-SA-2019SA251030

PATIENT
  Age: 65 Year
  Sex: Female
  Weight: 63.5 kg

DRUGS (9)
  1. TAXOTERE [Suspect]
     Active Substance: DOCETAXEL
     Dosage: 121 MG, UNK
     Route: 042
     Dates: start: 20151110, end: 20151110
  2. HERCEPTIN [Concomitant]
     Active Substance: TRASTUZUMAB
     Indication: BREAST CANCER FEMALE
  3. OXYCODONE [Concomitant]
     Active Substance: OXYCODONE
  4. TAXOTERE [Suspect]
     Active Substance: DOCETAXEL
     Dosage: 120 MG, UNK
     Route: 042
     Dates: start: 20151202, end: 20151202
  5. NIFEDIPINE. [Concomitant]
     Active Substance: NIFEDIPINE
  6. TAXOTERE [Suspect]
     Active Substance: DOCETAXEL
     Dosage: 122 MG, UNK
     Route: 042
     Dates: start: 20150929, end: 20150929
  7. TAXOTERE [Suspect]
     Active Substance: DOCETAXEL
     Dosage: 120 MG, UNK
     Route: 042
     Dates: start: 20151020, end: 20151020
  8. MORPHINE [Concomitant]
     Active Substance: MORPHINE
  9. TAXOTERE [Suspect]
     Active Substance: DOCETAXEL
     Indication: BREAST CANCER FEMALE
     Dosage: 121 MG, UNK
     Route: 042
     Dates: start: 20150908, end: 20150908

REACTIONS (6)
  - Emotional distress [Unknown]
  - Impaired quality of life [Unknown]
  - Psychological trauma [Unknown]
  - Alopecia [Not Recovered/Not Resolved]
  - Anxiety [Unknown]
  - Pain [Unknown]

NARRATIVE: CASE EVENT DATE: 201512
